FAERS Safety Report 13674093 (Version 1)
Quarter: 2017Q2

REPORT INFORMATION
  Report Type: Spontaneous
  Country: RO (occurrence: RO)
  Receive Date: 20170621
  Receipt Date: 20170621
  Transmission Date: 20170830
  Serious: Yes (Death)
  Sender: FDA-Public Use
  Company Number: RO-JNJFOC-20170615831

PATIENT
  Age: 43 Year
  Sex: Female

DRUGS (6)
  1. DEBRIDAT [Concomitant]
     Active Substance: TRIMEBUTINE MALEATE
     Route: 065
  2. NORVIR [Concomitant]
     Active Substance: RITONAVIR
     Indication: HIV INFECTION
     Route: 065
     Dates: start: 2016
  3. FENOBARBITAL [Concomitant]
     Active Substance: PHENOBARBITAL
     Route: 065
  4. PREZISTA [Suspect]
     Active Substance: DARUNAVIR ETHANOLATE
     Indication: HIV INFECTION
     Route: 048
     Dates: start: 2016
  5. KIVEXA [Concomitant]
     Active Substance: ABACAVIR SULFATE\LAMIVUDINE
     Indication: HIV INFECTION
     Route: 065
     Dates: start: 2016
  6. FLUCONAZOLE. [Concomitant]
     Active Substance: FLUCONAZOLE
     Route: 065

REACTIONS (6)
  - Abdominal pain [Unknown]
  - Platelet count decreased [Unknown]
  - Treatment noncompliance [Unknown]
  - Haemoglobin decreased [Unknown]
  - Cardio-respiratory arrest [Fatal]
  - HIV-associated neurocognitive disorder [Unknown]

NARRATIVE: CASE EVENT DATE: 20170606
